FAERS Safety Report 18040918 (Version 4)
Quarter: 2024Q1

REPORT INFORMATION
  Report Type: Report from Study
  Country: GB (occurrence: GB)
  Receive Date: 20200717
  Receipt Date: 20240208
  Transmission Date: 20240410
  Serious: Yes (Hospitalization, Other)
  Sender: FDA-Public Use
  Company Number: GB-ABBVIE-20K-167-3484377-00

PATIENT
  Age: 54 Year
  Sex: Male
  Weight: 94 kg

DRUGS (25)
  1. SKYRIZI [Suspect]
     Active Substance: RISANKIZUMAB-RZAA
     Indication: Psoriasis
     Route: 058
     Dates: start: 20191231, end: 20200124
  2. SKYRIZI [Suspect]
     Active Substance: RISANKIZUMAB-RZAA
     Indication: Psoriasis
     Route: 058
     Dates: start: 20200124, end: 20210806
  3. SKYRIZI [Suspect]
     Active Substance: RISANKIZUMAB-RZAA
     Route: 058
  4. VALPROATE SODIUM [Concomitant]
     Active Substance: VALPROATE SODIUM
     Indication: Product used for unknown indication
     Dates: start: 19940101
  5. ENSTILAR [Concomitant]
     Active Substance: BETAMETHASONE DIPROPIONATE\CALCIPOTRIENE HYDRATE
     Indication: Product used for unknown indication
     Dates: start: 20171022
  6. EPILIM [Concomitant]
     Active Substance: VALPROATE SODIUM
     Indication: Epilepsy
     Dates: start: 20150601
  7. EPILIM [Concomitant]
     Active Substance: VALPROATE SODIUM
     Indication: Epilepsy
     Route: 048
  8. CYCLOSPORINE [Concomitant]
     Active Substance: CYCLOSPORINE
     Indication: Psoriasis
     Dates: start: 20180101, end: 20190417
  9. CYCLOSPORINE [Concomitant]
     Active Substance: CYCLOSPORINE
     Indication: Psoriasis
     Dates: start: 20200120, end: 20200625
  10. CYCLOSPORINE [Concomitant]
     Active Substance: CYCLOSPORINE
     Indication: Psoriasis
     Dates: start: 20211020, end: 20211209
  11. CYCLOSPORINE [Concomitant]
     Active Substance: CYCLOSPORINE
     Indication: Psoriasis
     Dates: start: 20211210, end: 20220106
  12. CYCLOSPORINE [Concomitant]
     Active Substance: CYCLOSPORINE
     Indication: Psoriasis
     Dates: start: 20201008, end: 20210131
  13. CYCLOSPORINE [Concomitant]
     Active Substance: CYCLOSPORINE
     Indication: Psoriasis
     Dates: start: 20220107, end: 20220204
  14. CYCLOSPORINE [Concomitant]
     Active Substance: CYCLOSPORINE
     Indication: Psoriasis
     Dates: start: 20190417, end: 20190612
  15. CYCLOSPORINE [Concomitant]
     Active Substance: CYCLOSPORINE
     Indication: Psoriasis
     Dates: start: 20200626, end: 20201008
  16. CYCLOSPORINE [Concomitant]
     Active Substance: CYCLOSPORINE
     Indication: Psoriasis
     Dates: start: 20190612, end: 20191129
  17. CYCLOSPORINE [Concomitant]
     Active Substance: CYCLOSPORINE
     Indication: Psoriasis
     Dates: start: 20191129, end: 20191220
  18. Zopiclone ab [Concomitant]
     Indication: Insomnia
     Dosage: FREQUENCY TEXT: ONE PER NIGHT, AS NEEDED
     Dates: start: 20210826
  19. STRIVIT D3 [Concomitant]
     Indication: Vitamin D deficiency
     Dosage: 500 UG OF VIT D3, 20,000 IU CAPSULES
     Dates: start: 20220222, end: 20220412
  20. FOLIC ACID [Concomitant]
     Active Substance: FOLIC ACID
     Indication: Psoriasis
     Dosage: FREQUENCY TEXT: DAILY EXCEPT THURSDAYS
     Dates: start: 20210324, end: 20210324
  21. SILDENAFIL [Concomitant]
     Active Substance: SILDENAFIL
     Indication: Erectile dysfunction
     Dosage: FREQUENCY TEXT: ONE OR TWO, AS DIRECTED
     Dates: start: 20190918
  22. ACETAMINOPHEN [Concomitant]
     Active Substance: ACETAMINOPHEN
     Indication: Plantar fasciitis
     Dates: start: 20220614
  23. IBUPROFEN [Concomitant]
     Active Substance: IBUPROFEN
     Indication: Arthralgia
     Dates: start: 20210210, end: 20211216
  24. ALBUTEROL [Concomitant]
     Active Substance: ALBUTEROL
     Indication: Asthma
     Dosage: 5.00 MG/2.5ML
     Dates: start: 20190816
  25. METHOTREXATE [Concomitant]
     Active Substance: METHOTREXATE
     Indication: Psoriasis
     Dosage: FREQUENCY TEXT: WEEKLY ON THURSDAYS
     Dates: start: 20210325, end: 20210325

REACTIONS (10)
  - Skin bacterial infection [Recovering/Resolving]
  - Pustular psoriasis [Recovering/Resolving]
  - Arthralgia [Recovering/Resolving]
  - Cellulitis [Recovered/Resolved]
  - Skin infection [Recovering/Resolving]
  - Skin infection [Recovered/Resolved]
  - Pain [Recovering/Resolving]
  - Psoriasis [Recovered/Resolved]
  - Inflammatory marker increased [Recovered/Resolved]
  - Blood uric acid increased [Recovering/Resolving]

NARRATIVE: CASE EVENT DATE: 20200106
